FAERS Safety Report 12473061 (Version 2)
Quarter: 2016Q2

REPORT INFORMATION
  Report Type: Spontaneous
  Country: US (occurrence: US)
  Receive Date: 20160616
  Receipt Date: 20160624
  Transmission Date: 20160815
  Serious: Yes (Other)
  Sender: FDA-Public Use
  Company Number: US-FRESENIUS KABI-FK201603641

PATIENT
  Age: 61 Year
  Sex: Male

DRUGS (2)
  1. DACARBAZINE. [Concomitant]
     Active Substance: DACARBAZINE
     Indication: LIPOSARCOMA METASTATIC
  2. IFOSFAMIDE (MANUFACTURER UNKNOWN) [Suspect]
     Active Substance: IFOSFAMIDE
     Indication: LIPOSARCOMA METASTATIC
     Route: 065
     Dates: start: 201012

REACTIONS (1)
  - Hepatitis B [Recovered/Resolved]
